FAERS Safety Report 12921423 (Version 2)
Quarter: 2016Q4

REPORT INFORMATION
  Report Type: Spontaneous
  Country: US (occurrence: US)
  Receive Date: 20161108
  Receipt Date: 20161212
  Transmission Date: 20170207
  Serious: Yes (Hospitalization, Other)
  Sender: FDA-Public Use
  Company Number: US-GLAXOSMITHKLINE-US2016GSK162899

PATIENT
  Sex: Male

DRUGS (1)
  1. FLOVENT [Suspect]
     Active Substance: FLUTICASONE PROPIONATE
     Indication: ASTHMA
     Dosage: UNK
     Dates: start: 2012

REACTIONS (6)
  - Drug eruption [Unknown]
  - Rash generalised [Unknown]
  - Erythema multiforme [Unknown]
  - Pityriasis rosea [Unknown]
  - Rash pruritic [Unknown]
  - Product quality issue [Unknown]
